FAERS Safety Report 9781861 (Version 3)
Quarter: 2014Q1

REPORT INFORMATION
  Report Type: Spontaneous
  Country: DE (occurrence: DE)
  Receive Date: 20131225
  Receipt Date: 20140214
  Transmission Date: 20141002
  Serious: Yes (Hospitalization, Other)
  Sender: FDA-Public Use
  Company Number: DE-ROCHE-1325291

PATIENT
  Sex: Male

DRUGS (3)
  1. LUCENTIS [Suspect]
     Indication: AGE-RELATED MACULAR DEGENERATION
     Route: 050
     Dates: start: 20131203
  2. LUCENTIS [Suspect]
     Route: 050
     Dates: start: 20140124
  3. OMEPRAZOLE [Concomitant]

REACTIONS (1)
  - Myocardial infarction [Recovered/Resolved]
